FAERS Safety Report 5749963-2 (Version None)
Quarter: 2008Q2

REPORT INFORMATION
  Report Type: 
  Country: None (occurrence: None)
  Receive Date: 20080527
  Receipt Date: 20080521
  Transmission Date: 20081010
  Serious: Yes (Other)
  Sender: FDA-Public Use
  Company Number: AT-WYE-G01563108

PATIENT
  Age: 58 Year
  Sex: Male
  Weight: 74 kg

DRUGS (7)
  1. RAPAMUNE [Suspect]
     Indication: IMMUNOSUPPRESSION
     Dosage: 2 MG PER DAY FREQUENCY UNKNOWN
     Route: 048
     Dates: start: 20040924
  2. RAPAMUNE [Suspect]
     Dosage: 4 MG PER DAY FREQUENCY UNKNOWN
     Route: 048
     Dates: start: 20040101
  3. RAPAMUNE [Suspect]
     Dosage: 3 MG PER DAY FREQUENCY UNKNOWN
     Route: 048
     Dates: start: 20070101
  4. ACETYLSALICYLIC ACID SRT [Concomitant]
     Indication: THROMBOSIS PROPHYLAXIS
     Dosage: DOSE AND FREQUENCY UNKNOWN
     Dates: end: 20071216
  5. PENTOXIFYLLINE [Concomitant]
     Dosage: 400 MG  FREQUENCY UNKNOWN
     Route: 048
     Dates: end: 20071216
  6. PREDNISOLONE [Concomitant]
     Indication: IMMUNOSUPPRESSION
     Dosage: 5 MG PER DAY
     Route: 048
  7. EZETROL [Concomitant]
     Indication: HYPERLIPIDAEMIA
     Dosage: 10 MG PER DAY
     Route: 048
     Dates: end: 20080227

REACTIONS (1)
  - OESOPHAGEAL CARCINOMA [None]
